FAERS Safety Report 4568184-2 (Version None)
Quarter: 2005Q1

REPORT INFORMATION
  Report Type: 
  Country: None (occurrence: None)
  Receive Date: 20050131
  Receipt Date: 20050125
  Transmission Date: 20050727
  Serious: Yes (Death)
  Sender: FDA-Public Use
  Company Number: 05H-083-0287896-00

PATIENT

DRUGS (3)
  1. LEUCOVORIN CALCIUM [Suspect]
     Indication: GASTRIC CANCER
     Dosage: 500 MG/M2, ONCE WEEKLY, (DAYS 1, 8, 15, 22, 29, 36); INTRAVENOUS INFUSION
     Route: 042
  2. IRINOTECAN [Suspect]
     Indication: GASTRIC CANCER
     Dosage: 50 MG/M2, ONCE WEEKLY (DAYS 1, 8, 15, 22, 29, 36); INTRAVENOUS INFUSION
     Route: 042
  3. FLUOROURACIL [Suspect]
     Indication: GASTRIC CANCER
     Dosage: 2000 MG/M2, ONCE WEEKLY (DAYS 1, 8, 15, 22, 29, 36); INTRAVENOUS INFUSION
     Route: 042

REACTIONS (3)
  - DIARRHOEA [None]
  - DRUG TOXICITY [None]
  - NEUTROPENIA [None]
